FAERS Safety Report 5264829-2 (Version None)
Quarter: 2007Q1

REPORT INFORMATION
  Report Type: 
  Country: None (occurrence: None)
  Receive Date: 20070314
  Receipt Date: 20070308
  Transmission Date: 20070707
  Serious: Yes (Other)
  Sender: FDA-Public Use
  Company Number: BPC-ZN-145

PATIENT
  Age: 50 Year
  Sex: Female
  Weight: 61.4 kg

DRUGS (1)
  1. ZYBAN [Suspect]
     Dosage: 150MG TWICE PER DAY
     Route: 048
     Dates: start: 20070122, end: 20070225

REACTIONS (5)
  - ANXIETY [None]
  - DEPRESSED MOOD [None]
  - FEELING ABNORMAL [None]
  - SUICIDAL IDEATION [None]
  - TENSION [None]
